FAERS Safety Report 7514827-0 (Version None)
Quarter: 2011Q2

REPORT INFORMATION
  Report Type: 
  Country: None (occurrence: None)
  Receive Date: 20110422
  Receipt Date: 20100521
  Transmission Date: 20111010
  Serious: Yes (Other)
  Sender: FDA-Public Use
  Company Number: WAES 1005USA03189

PATIENT
  Age: 7 Year
  Sex: Female

DRUGS (1)
  1. SINGULAIR [Suspect]
     Indication: ASTHMA
     Dosage: PO
     Route: 048

REACTIONS (4)
  - CONVULSION [None]
  - DEPRESSION [None]
  - MOOD ALTERED [None]
  - ABNORMAL BEHAVIOUR [None]
